FAERS Safety Report 7042864-1 (Version None)
Quarter: 2010Q4

REPORT INFORMATION
  Report Type: 
  Country: None (occurrence: None)
  Receive Date: 20101013
  Receipt Date: 20100407
  Transmission Date: 20110411
  Serious: Yes (Hospitalization)
  Sender: FDA-Public Use
  Company Number: US-ASTRAZENECA-2010SE15167

PATIENT
  Age: 20864 Day
  Sex: Male

DRUGS (1)
  1. SYMBICORT [Suspect]
     Dosage: 640 MCG
     Route: 055

REACTIONS (1)
  - ORAL CANDIDIASIS [None]
